FAERS Safety Report 6737374-2 (Version None)
Quarter: 2010Q2

REPORT INFORMATION
  Report Type: 
  Country: None (occurrence: None)
  Receive Date: 20100524
  Receipt Date: 20100519
  Transmission Date: 20101027
  Serious: Yes (Life-Threatening, Hospitalization, Other)
  Sender: FDA-Public Use
  Company Number: DE-JNJFOC-20100506918

PATIENT
  Age: 83 Year
  Sex: Male
  Weight: 99 kg

DRUGS (15)
  1. DURAGESIC-100 [Suspect]
     Indication: ARTHRALGIA
     Route: 062
     Dates: start: 20080101, end: 20100405
  2. DURAGESIC-100 [Suspect]
     Route: 062
     Dates: start: 20080101, end: 20100405
  3. DURAGESIC-100 [Suspect]
     Route: 062
     Dates: start: 20080101, end: 20100405
  4. DURAGESIC-100 [Suspect]
     Route: 062
     Dates: start: 20080101, end: 20100405
  5. ZOP [Suspect]
     Indication: SLEEP DISORDER THERAPY
     Route: 048
     Dates: start: 20100401, end: 20100404
  6. REMERGIL [Concomitant]
     Indication: PARKINSON'S DISEASE
     Route: 048
     Dates: start: 20050101
  7. MADOPAR [Concomitant]
     Indication: PARKINSON'S DISEASE
     Route: 048
     Dates: start: 20050101
  8. RANITIC [Concomitant]
     Indication: PROPHYLAXIS AGAINST GASTROINTESTINAL ULCER
     Route: 048
     Dates: start: 20000101
  9. LYRICA [Concomitant]
     Indication: POLYNEUROPATHY
     Route: 048
     Dates: start: 20050101
  10. SIMVASTATIN [Concomitant]
     Indication: CORONARY ARTERY DISEASE
     Route: 048
  11. ASPIRIN [Concomitant]
     Indication: CORONARY ARTERY DISEASE
     Route: 048
  12. TORSEMIDE [Concomitant]
     Indication: HYPERTENSION
     Route: 048
  13. METOPROLOL TARTRATE [Concomitant]
     Indication: HYPERTENSION
     Route: 048
  14. LISINOPRIL [Concomitant]
     Indication: HYPERTENSION
     Route: 048
  15. LEVOTHYROXINE SODIUM [Concomitant]
     Indication: HYPOTHYROIDISM
     Route: 048
     Dates: start: 20100327

REACTIONS (9)
  - ALTERED STATE OF CONSCIOUSNESS [None]
  - CARDIAC ARREST [None]
  - CONTUSION [None]
  - CYANOSIS [None]
  - FALL [None]
  - MIOSIS [None]
  - OVERDOSE [None]
  - RESPIRATORY DEPRESSION [None]
  - TRANSAMINASES INCREASED [None]
